FAERS Safety Report 8128087-3 (Version None)
Quarter: 2012Q1

REPORT INFORMATION
  Report Type: 
  Country: None (occurrence: None)
  Receive Date: 20120210
  Receipt Date: 20120201
  Transmission Date: 20120608
  Serious: Yes (Other)
  Sender: FDA-Public Use
  Company Number: US-PFIZER INC-2012003558

PATIENT
  Sex: Male
  Weight: 73 kg

DRUGS (3)
  1. NEXIUM [Concomitant]
     Dosage: UNK
  2. PROTONIX [Suspect]
     Indication: ABDOMINAL DISCOMFORT
  3. PROTONIX [Suspect]
     Indication: GASTROOESOPHAGEAL REFLUX DISEASE
     Dosage: 40 MG, 1X/DAY
     Route: 048

REACTIONS (2)
  - PROSTATE CANCER [None]
  - BLOOD CHOLESTEROL INCREASED [None]
